FAERS Safety Report 9370436 (Version 2)
Quarter: 2014Q2

REPORT INFORMATION
  Report Type: Spontaneous
  Country: US (occurrence: US)
  Receive Date: 20130626
  Receipt Date: 20140423
  Transmission Date: 20141212
  Serious: Yes (Hospitalization)
  Sender: FDA-Public Use
  Company Number: US-GLAXOSMITHKLINE-A1028330A

PATIENT
  Age: 75 Year
  Sex: Female

DRUGS (2)
  1. AVANDAMET [Suspect]
     Indication: DIABETES MELLITUS
     Route: 048
     Dates: start: 200303, end: 2008
  2. AVANDIA [Suspect]
     Indication: DIABETES MELLITUS
     Dosage: 8MG PER DAY
     Route: 048
     Dates: start: 200601, end: 200608

REACTIONS (3)
  - Angina unstable [Unknown]
  - Acute coronary syndrome [Unknown]
  - Myocardial ischaemia [Unknown]
